FAERS Safety Report 24648659 (Version 1)
Quarter: 2024Q4

REPORT INFORMATION
  Report Type: Spontaneous
  Country: GR (occurrence: GR)
  Receive Date: 20241121
  Receipt Date: 20241121
  Transmission Date: 20250114
  Serious: Yes (Other)
  Sender: PFIZER
  Company Number: GR-PFIZER INC-202400304193

PATIENT
  Age: 45 Year
  Sex: Female

DRUGS (1)
  1. LORLATINIB [Suspect]
     Active Substance: LORLATINIB
     Indication: Lung adenocarcinoma
     Dosage: UNK

REACTIONS (3)
  - Oedema [Recovered/Resolved]
  - Weight increased [Recovered/Resolved]
  - Musculoskeletal disorder [Recovered/Resolved]
